FAERS Safety Report 9109483 (Version 1)
Quarter: 2013Q1

REPORT INFORMATION
  Report Type: Spontaneous
  Country: US (occurrence: US)
  Receive Date: 20130222
  Receipt Date: 20130222
  Transmission Date: 20140127
  Serious: Yes (Hospitalization)
  Sender: FDA-Public Use
  Company Number: US-MYLANLABS-2013S1003142

PATIENT
  Age: 44 Year
  Sex: Female

DRUGS (2)
  1. TAMOXIFEN [Suspect]
     Route: 065
  2. CEFTRIAXONE [Concomitant]
     Indication: BACTERASCITES
     Route: 065

REACTIONS (1)
  - Budd-Chiari syndrome [Recovering/Resolving]
